FAERS Safety Report 8524224-7 (Version None)
Quarter: 2012Q2

REPORT INFORMATION
  Report Type: 
  Country: None (occurrence: None)
  Receive Date: 20120406
  Receipt Date: 20120302
  Transmission Date: 20120825
  Serious: Yes (Other)
  Sender: FDA-Public Use
  Company Number: US-CYPR-2011-000021

PATIENT
  Sex: Male
  Weight: 91.173 kg

DRUGS (24)
  1. RANITIDINE [Concomitant]
  2. ASPIRIN [Suspect]
     Indication: CORONARY ARTERY DISEASE
     Dosage: (325 MG 325X/DAY ORAL)
     Route: 048
     Dates: start: 20000101, end: 20110930
  3. ASCORBIC ACID [Concomitant]
  4. VITAMIN E [Concomitant]
  5. BACTRIM [Concomitant]
  6. MULTI-VITAMINS [Concomitant]
  7. CALCIUM [Concomitant]
  8. NIACIN [Concomitant]
  9. POTASSIUM CHLORIDE [Concomitant]
  10. ISOSORBIDE [Concomitant]
  11. XANAX [Concomitant]
  12. AMBIEN [Concomitant]
  13. PENTOXIFYLLINE [Concomitant]
  14. CYPHER STENT [Concomitant]
  15. CLOPIDOGREL [Suspect]
     Indication: ANTIPLATELET THERAPY
     Dosage: (75 MG QD ORAL), (75 MG QD ORAL)
     Route: 048
     Dates: start: 20110303, end: 20110506
  16. CLOPIDOGREL [Suspect]
     Indication: ANTIPLATELET THERAPY
     Dosage: (75 MG QD ORAL), (75 MG QD ORAL)
     Route: 048
     Dates: start: 20110514, end: 20110908
  17. PRAVASTATIN [Concomitant]
  18. VASOTEC [Concomitant]
  19. CIPROFLOXACIN HCL [Concomitant]
  20. METOPROLOL SUCCINATE [Concomitant]
  21. FLOMAX [Concomitant]
  22. FISH OIL [Concomitant]
  23. LISINOPRIL [Concomitant]
  24. LASIX [Concomitant]

REACTIONS (1)
  - PROSTATE CANCER RECURRENT [None]
